FAERS Safety Report 6488060-8 (Version None)
Quarter: 2009Q4

REPORT INFORMATION
  Report Type: 
  Country: None (occurrence: None)
  Receive Date: 20091210
  Receipt Date: 20091203
  Transmission Date: 20100525
  Serious: No
  Sender: FDA-Public Use
  Company Number: US-B.I. PHARMACEUTICALS,INC./RIDGEFIELD-2009-BP-13058BP

PATIENT
  Age: 72 Year
  Sex: Male

DRUGS (6)
  1. FLOMAX [Suspect]
     Indication: BENIGN PROSTATIC HYPERPLASIA
     Dosage: 0.4 MG
     Route: 048
     Dates: start: 20091023, end: 20091027
  2. FLOMAX [Suspect]
     Indication: MICTURITION URGENCY
  3. FLOMAX [Suspect]
     Indication: PROSTATOMEGALY
  4. REQUIP [Concomitant]
     Indication: PARKINSON'S DISEASE
     Dosage: 9 MG
  5. ZOCOR [Concomitant]
     Dosage: 20 MG
  6. CARBIDOPA-LEVODOPA [Concomitant]

REACTIONS (1)
  - RASH [None]
